FAERS Safety Report 10268599 (Version 1)
Quarter: 2014Q2

REPORT INFORMATION
  Report Type: Spontaneous
  Country: BR (occurrence: BR)
  Receive Date: 20140630
  Receipt Date: 20140630
  Transmission Date: 20141212
  Serious: Yes (Hospitalization)
  Sender: FDA-Public Use
  Company Number: BR-PFIZER INC-2014176261

PATIENT
  Age: 60 Year
  Sex: Male
  Weight: 84 kg

DRUGS (7)
  1. LIPITOR [Suspect]
     Indication: LIPIDS INCREASED
     Dosage: UNK
     Route: 048
     Dates: start: 200406
  2. AAS [Concomitant]
     Dosage: AT LUNCH
  3. CARVEDILOL [Concomitant]
     Dosage: TWICE DAILY IN THE MORNING AND AT DINNER
  4. CLOPIDOGREL [Concomitant]
     Dosage: AT LUNCH
  5. ENALAPRIL [Concomitant]
     Dosage: TWICE DAILY IN THE MORNING AND AT DINNER
  6. METFORMIN [Concomitant]
     Dosage: TWICE DAILY AT LUNCH AND DINNER
  7. OMEPRAZOLE [Concomitant]
     Dosage: IN THE MORNING
     Dates: end: 201404

REACTIONS (1)
  - Infarction [Unknown]
